FAERS Safety Report 17471339 (Version 3)
Quarter: 2024Q3

REPORT INFORMATION
  Report Type: Report from Study
  Country: US (occurrence: US)
  Receive Date: 20200227
  Receipt Date: 20240813
  Transmission Date: 20241017
  Serious: Yes (Hospitalization)
  Sender: ROCHE
  Company Number: US-ROCHE-2556528

PATIENT
  Sex: Female

DRUGS (27)
  1. CELLCEPT [Suspect]
     Active Substance: MYCOPHENOLATE MOFETIL
     Indication: Uveitis
     Dosage: ^TAKE 3 TABLETS QAM...^
     Route: 048
     Dates: start: 20200217
  2. CELLCEPT [Suspect]
     Active Substance: MYCOPHENOLATE MOFETIL
     Indication: Retinal vein occlusion
     Dosage: ^AND 2 TABLETS QHS^
     Route: 048
  3. CELLCEPT [Suspect]
     Active Substance: MYCOPHENOLATE MOFETIL
     Dosage: 2 TABLETS AM, 2 TABLETS PM
     Route: 048
  4. CELLCEPT [Suspect]
     Active Substance: MYCOPHENOLATE MOFETIL
     Dosage: 2 TABS BID
     Route: 048
  5. CELLCEPT [Suspect]
     Active Substance: MYCOPHENOLATE MOFETIL
     Route: 048
     Dates: start: 2021
  6. CELLCEPT [Suspect]
     Active Substance: MYCOPHENOLATE MOFETIL
     Dosage: TAKE 2 TABLET BY MOUTH EVERY MORNING AND 1 EVERY EVENING
     Route: 048
     Dates: start: 20190830
  7. CELLCEPT [Suspect]
     Active Substance: MYCOPHENOLATE MOFETIL
     Dosage: TAKE 3 TABLET IN MORNING AND 2 TABLET IN EVENING
     Route: 048
     Dates: start: 20200217
  8. CELLCEPT [Suspect]
     Active Substance: MYCOPHENOLATE MOFETIL
     Dosage: 1000MG IN THE MORNING AND 500MG IN THE AFTERNOON
     Route: 048
  9. CELLCEPT [Suspect]
     Active Substance: MYCOPHENOLATE MOFETIL
     Dosage: TAKE 2 TABLET BY MOUTH EVERY MORNING AND 1 TABLET BY MOUTH EVERY EVENING
     Route: 048
     Dates: start: 20240513
  10. AVASTIN [Suspect]
     Active Substance: BEVACIZUMAB
     Indication: Cystoid macular oedema
     Route: 042
  11. VALCYTE [Suspect]
     Active Substance: VALGANCICLOVIR HYDROCHLORIDE
     Indication: Nasopharyngitis
     Dosage: TAKE 2 TABLET AT FIRST SIGN OF COLD AND 2 TABS 12 HR LATER
     Route: 065
  12. TACROLIMUS [Concomitant]
     Active Substance: TACROLIMUS
  13. VALTREX [Concomitant]
     Active Substance: VALACYCLOVIR HYDROCHLORIDE
  14. KENALOG [Concomitant]
     Active Substance: TRIAMCINOLONE ACETONIDE
  15. TIMOPTIC [Concomitant]
     Active Substance: TIMOLOL MALEATE
  16. METOPROLOL TARTRATE [Concomitant]
     Active Substance: METOPROLOL TARTRATE
  17. LISINOPRIL [Concomitant]
     Active Substance: LISINOPRIL
  18. XALATAN [Concomitant]
     Active Substance: LATANOPROST
  19. ESTRACE [Concomitant]
     Active Substance: ESTRADIOL
  20. CYCLOBENZAPRINE HYDROCHLORIDE [Concomitant]
     Active Substance: CYCLOBENZAPRINE HYDROCHLORIDE
  21. ASPIRIN [Concomitant]
     Active Substance: ASPIRIN
     Route: 048
  22. ASCORBIC ACID [Concomitant]
     Active Substance: ASCORBIC ACID
  23. NORVASC [Concomitant]
     Active Substance: AMLODIPINE BESYLATE
     Route: 048
  24. FOSAMAX [Concomitant]
     Active Substance: ALENDRONATE SODIUM
     Route: 048
  25. PREDNISONE [Concomitant]
     Active Substance: PREDNISONE
  26. LATANOPROST [Concomitant]
     Active Substance: LATANOPROST
  27. DICLOFENAC [Concomitant]
     Active Substance: DICLOFENAC

REACTIONS (5)
  - Off label use [Unknown]
  - Circumstance or information capable of leading to medication error [Unknown]
  - Hypertension [Unknown]
  - Illness [Recovered/Resolved]
  - Diarrhoea [Recovered/Resolved]
